FAERS Safety Report 9280117 (Version 3)
Quarter: 2014Q4

REPORT INFORMATION
  Report Type: Spontaneous
  Country: US (occurrence: US)
  Receive Date: 20130509
  Receipt Date: 20141015
  Transmission Date: 20150529
  Serious: Yes (Other)
  Sender: FDA-Public Use
  Company Number: US-BAYER-2013-054751

PATIENT
  Age: 37 Year
  Sex: Female
  Weight: 99.77 kg

DRUGS (1)
  1. MIRENA [Suspect]
     Active Substance: LEVONORGESTREL
     Indication: CONTRACEPTION
     Dosage: 20 MCG/24HR, CONT
     Route: 015
     Dates: start: 201010, end: 201105

REACTIONS (14)
  - Internal injury [None]
  - Uterine perforation [None]
  - Abortion spontaneous [None]
  - Depression [None]
  - Fear [None]
  - Ovarian cyst [None]
  - Drug ineffective [None]
  - Genital haemorrhage [None]
  - Haemorrhage in pregnancy [None]
  - Injury [None]
  - Emotional distress [None]
  - Pregnancy with contraceptive device [Recovered/Resolved]
  - Pain [None]
  - Anxiety [None]

NARRATIVE: CASE EVENT DATE: 201010
